FAERS Safety Report 7398900-6 (Version None)
Quarter: 2011Q2

REPORT INFORMATION
  Report Type: 
  Country: None (occurrence: None)
  Receive Date: 20110407
  Receipt Date: 20110330
  Transmission Date: 20111010
  Serious: Yes (Hospitalization)
  Sender: FDA-Public Use
  Company Number: GB-AMGEN-GBRSP2011016808

PATIENT
  Sex: Female

DRUGS (5)
  1. FLUOROURACIL [Concomitant]
  2. CYCLOPHOSPHAMIDE [Concomitant]
  3. TAXOTERE [Concomitant]
  4. NEULASTA [Suspect]
     Indication: CHEMOTHERAPY
     Dosage: UNK
  5. EPIRUBICIN [Concomitant]

REACTIONS (1)
  - NEUTROPENIC SEPSIS [None]
